FAERS Safety Report 5825835-X (Version None)
Quarter: 2008Q3

REPORT INFORMATION
  Report Type: 
  Country: None (occurrence: None)
  Receive Date: 20080729
  Receipt Date: 20080723
  Transmission Date: 20090109
  Serious: Yes (Death, Hospitalization)
  Sender: FDA-Public Use
  Company Number: NL-AVENTIS-200815400GDDC

PATIENT
  Age: 59 Year
  Sex: Female

DRUGS (3)
  1. DOCETAXEL [Suspect]
     Route: 042
     Dates: start: 20070711, end: 20070815
  2. CARBOPLATIN [Suspect]
     Route: 042
     Dates: start: 20070815, end: 20070815
  3. CODE UNBROKEN [Suspect]
     Dosage: DOSE: 2 CAPSULES
     Route: 048
     Dates: start: 20070711, end: 20070826

REACTIONS (3)
  - LEUKOPENIA [None]
  - PNEUMONIA [None]
  - PULMONARY HAEMORRHAGE [None]
